FAERS Safety Report 8608464-4 (Version None)
Quarter: 2012Q3

REPORT INFORMATION
  Report Type: 
  Country: None (occurrence: None)
  Receive Date: 20120821
  Receipt Date: 20120814
  Transmission Date: 20120928
  Serious: No
  Sender: FDA-Public Use
  Company Number: US-B.I. PHARMACEUTICALS,INC./RIDGEFIELD-2012-BP-13946BP

PATIENT
  Sex: Male

DRUGS (5)
  1. SPIRIVA [Suspect]
     Indication: DYSPNOEA
  2. SPIRIVA [Suspect]
     Indication: OEDEMA
     Dosage: 18 MG
     Route: 055
     Dates: start: 20120401
  3. MEDICATION NOT FURTHER SPECIFIED [Concomitant]
     Indication: DIABETES MELLITUS
     Route: 048
     Dates: start: 20100101
  4. FLOMAX [Suspect]
     Indication: DYSURIA
     Dosage: 0.4 MG
     Route: 048
     Dates: start: 20050101
  5. AVODART [Concomitant]
     Indication: PROSTATIC DISORDER
     Dates: start: 20050101

REACTIONS (4)
  - UPPER-AIRWAY COUGH SYNDROME [None]
  - INCREASED UPPER AIRWAY SECRETION [None]
  - BLOOD CHOLESTEROL ABNORMAL [None]
  - DYSPNOEA [None]
